FAERS Safety Report 15736735 (Version 1)
Quarter: 2018Q4

REPORT INFORMATION
  Report Type: Spontaneous
  Country: GB (occurrence: GB)
  Receive Date: 20181218
  Receipt Date: 20181218
  Transmission Date: 20190205
  Serious: Yes (Other)
  Sender: FDA-Public Use
  Company Number: GB-PFIZER INC-2018513927

PATIENT
  Age: 71 Year
  Sex: Female
  Weight: 61 kg

DRUGS (4)
  1. FLUPENTIXOL [Concomitant]
     Active Substance: FLUPENTIXOL
     Dosage: 2 DF, 1X/DAY (1 IN THE MORNING 1 AT NIGHT.)
     Dates: start: 20180601
  2. AMLODIPINE BESILATE [Suspect]
     Active Substance: AMLODIPINE BESYLATE
     Dosage: 5 MG, 1X/DAY
     Dates: start: 20181112
  3. DIPROBASE [CETOMACROGOL;CETOSTEARYL ALCOHOL;PARAFFIN, LIQUID;WHITE SOF [Concomitant]
     Dosage: UNK, AS NEEDED (APPLY)
     Dates: start: 20140624
  4. CIMETIDINE [Concomitant]
     Active Substance: CIMETIDINE
     Dosage: 4 DF, 1X/DAY
     Dates: start: 20150708

REACTIONS (1)
  - Sleep disorder [Recovering/Resolving]
